FAERS Safety Report 6867078-7 (Version None)
Quarter: 2010Q3

REPORT INFORMATION
  Report Type: 
  Country: None (occurrence: None)
  Receive Date: 20100722
  Receipt Date: 20100630
  Transmission Date: 20110219
  Serious: Yes (Death)
  Sender: FDA-Public Use
  Company Number: A0811041A

PATIENT
  Age: 71 Year
  Sex: Male

DRUGS (10)
  1. AVANDIA [Suspect]
     Dosage: 4MG PER DAY
     Route: 048
     Dates: start: 20050810, end: 20070613
  2. GLIPIZIDE [Concomitant]
     Dates: start: 20050810
  3. LOTENSIN [Concomitant]
  4. LIPITOR [Concomitant]
  5. HYDROCHLOROTHIAZIDE [Concomitant]
  6. RANITIDINE HCL [Concomitant]
  7. WELLBUTRIN [Concomitant]
  8. ARTHROTEC [Concomitant]
  9. ALPRAZOLAM [Concomitant]
  10. GLUCOPHAGE [Concomitant]
     Dates: start: 20070601

REACTIONS (2)
  - CARDIO-RESPIRATORY ARREST [None]
  - MYOCARDIAL INFARCTION [None]
